FAERS Safety Report 6912943-5 (Version None)
Quarter: 2010Q3

REPORT INFORMATION
  Report Type: 
  Country: None (occurrence: None)
  Receive Date: 20100806
  Receipt Date: 20090415
  Transmission Date: 20110219
  Serious: No
  Sender: FDA-Public Use
  Company Number: US-PFIZER INC-2009173254

PATIENT
  Sex: Male

DRUGS (3)
  1. GLUCOTROL XL [Suspect]
  2. METFORMIN [Concomitant]
     Dosage: UNK
  3. SALBUTAMOL SULFATE [Concomitant]
     Dosage: UNK

REACTIONS (1)
  - DRUG INEFFECTIVE [None]
